FAERS Safety Report 17490416 (Version 1)
Quarter: 2020Q1

REPORT INFORMATION
  Report Type: Spontaneous
  Country: US (occurrence: US)
  Receive Date: 20200303
  Receipt Date: 20200303
  Transmission Date: 20200409
  Serious: No
  Sender: FDA-Public Use
  Company Number: US-AKORN PHARMACEUTICALS-2019AKN00732

PATIENT
  Age: 18 Year
  Sex: Female
  Weight: 54.42 kg

DRUGS (3)
  1. MYORISAN [Suspect]
     Active Substance: ISOTRETINOIN
     Dosage: 40 MG, 2X/DAY
     Route: 048
     Dates: start: 201903
  2. FISH OIL [Concomitant]
     Active Substance: FISH OIL
  3. MYORISAN [Suspect]
     Active Substance: ISOTRETINOIN
     Indication: ACNE
     Dosage: UNK
     Route: 048
     Dates: start: 201901, end: 201903

REACTIONS (3)
  - Pain [Not Recovered/Not Resolved]
  - Joint instability [Not Recovered/Not Resolved]
  - Muscle spasms [Not Recovered/Not Resolved]

NARRATIVE: CASE EVENT DATE: 201903
